FAERS Safety Report 24010173 (Version 1)
Quarter: 2024Q2

REPORT INFORMATION
  Report Type: Spontaneous
  Country: CN (occurrence: CN)
  Receive Date: 20240625
  Receipt Date: 20240625
  Transmission Date: 20240715
  Serious: Yes (Other)
  Sender: FDA-Public Use
  Company Number: CN-AMGEN-CHNSP2024122763

PATIENT
  Sex: Female

DRUGS (2)
  1. BLINATUMOMAB [Suspect]
     Active Substance: BLINATUMOMAB
     Indication: Acute lymphocytic leukaemia
     Dosage: 9 MICROGRAM (D1-D3)
     Route: 065
     Dates: start: 20220617
  2. BLINATUMOMAB [Suspect]
     Active Substance: BLINATUMOMAB
     Dosage: 9 MICROGRAM (D4-D21)
     Route: 065
     Dates: end: 20220706

REACTIONS (3)
  - Myelosuppression [Unknown]
  - Pneumonia [Unknown]
  - Treatment failure [Unknown]

NARRATIVE: CASE EVENT DATE: 20220601
